FAERS Safety Report 15621194 (Version 1)
Quarter: 2018Q4

REPORT INFORMATION
  Report Type: Spontaneous
  Country: GB (occurrence: GB)
  Receive Date: 20181115
  Receipt Date: 20181115
  Transmission Date: 20190205
  Serious: Yes (Other)
  Sender: FDA-Public Use
  Company Number: PHHY2018GB153563

PATIENT
  Sex: Female

DRUGS (38)
  1. DEXAMETHASONE. [Concomitant]
     Active Substance: DEXAMETHASONE
     Dosage: 2 MG, UNK
     Route: 048
     Dates: start: 20151125, end: 20151202
  2. MEROPENEM. [Concomitant]
     Active Substance: MEROPENEM
     Indication: PYREXIA
     Dosage: 3 G, UNK
     Route: 042
     Dates: start: 20180813, end: 20180814
  3. DIAZEPAM. [Concomitant]
     Active Substance: DIAZEPAM
     Indication: MUSCULOSKELETAL STIFFNESS
  4. ZOMETA [Concomitant]
     Active Substance: ZOLEDRONIC ACID
     Indication: PRODUCT USED FOR UNKNOWN INDICATION
     Dosage: 4 MG, 4 MONTHLY
     Route: 042
     Dates: start: 20150827
  5. AMOXICILLIN. [Concomitant]
     Active Substance: AMOXICILLIN
     Indication: OSTEOMYELITIS
     Dosage: UNK
     Route: 048
  6. AMOXICILLIN. [Concomitant]
     Active Substance: AMOXICILLIN
     Dosage: 1000 MG, UNK
     Route: 048
     Dates: start: 20180701, end: 20180711
  7. DOXYCYCLINE. [Concomitant]
     Active Substance: DOXYCYCLINE
     Indication: PYREXIA
     Dosage: UNK
     Route: 048
  8. MORPHINE SULPHATE [Concomitant]
     Active Substance: MORPHINE SULFATE
     Dosage: 60 MG, ONCE AT NIGHT
     Route: 048
  9. CYCLIZINE [Concomitant]
     Active Substance: CYCLIZINE
     Indication: PRODUCT USED FOR UNKNOWN INDICATION
     Dosage: 150 MG, UNK
     Route: 048
     Dates: start: 201507
  10. BENZYLPENICILLIN [Concomitant]
     Active Substance: PENICILLIN G
     Indication: PYREXIA
     Dosage: UNK
  11. LANSOPRAZOLE. [Concomitant]
     Active Substance: LANSOPRAZOLE
     Indication: PRODUCT USED FOR UNKNOWN INDICATION
     Dosage: 15 MG, QD
     Route: 048
     Dates: start: 2001
  12. MORPHINE SULPHATE [Concomitant]
     Active Substance: MORPHINE SULFATE
     Indication: BACK PAIN
     Dosage: 30 MG, UNK
     Route: 048
     Dates: start: 201504
  13. METRONIDAZOLE. [Concomitant]
     Active Substance: METRONIDAZOLE
     Indication: CELLULITIS
     Dosage: 1600 MG, UNK
     Route: 048
     Dates: start: 20180915, end: 20180921
  14. PARACETAMOL [Concomitant]
     Active Substance: ACETAMINOPHEN
     Indication: PRODUCT USED FOR UNKNOWN INDICATION
     Dosage: AS NEEDED
     Route: 048
  15. CODEINE [Concomitant]
     Active Substance: CODEINE
     Indication: PRODUCT USED FOR UNKNOWN INDICATION
     Dosage: 30 MG, PRN
     Route: 048
  16. DEXAMETHASONE. [Concomitant]
     Active Substance: DEXAMETHASONE
     Dosage: REDUCING DOSE FROM HOSPITAL ADMISSION 8/OCT/2015- 10/OCT/2015
     Route: 048
     Dates: start: 20151008, end: 20151020
  17. LISINOPRIL. [Concomitant]
     Active Substance: LISINOPRIL
     Indication: EJECTION FRACTION DECREASED
     Dosage: 7.5 MG, QD
     Route: 048
     Dates: start: 20161110
  18. PROMETHAZINE HYDROCHLORIDE. [Concomitant]
     Active Substance: PROMETHAZINE HYDROCHLORIDE
     Indication: PRODUCT USED FOR UNKNOWN INDICATION
     Dosage: UNK
     Route: 048
  19. LETROZOLE. [Suspect]
     Active Substance: LETROZOLE
     Indication: PRODUCT USED FOR UNKNOWN INDICATION
     Dosage: 2.5 MG, QD
     Route: 048
     Dates: start: 201507
  20. TRASTUZUMAB. [Suspect]
     Active Substance: TRASTUZUMAB
     Indication: HER-2 POSITIVE BREAST CANCER
     Dosage: 600 MG, QD
     Route: 058
     Dates: start: 20150716
  21. DEXAMETHASONE. [Concomitant]
     Active Substance: DEXAMETHASONE
     Dosage: 8 MG, UNK
     Route: 048
     Dates: start: 20151020, end: 20151103
  22. BENZYLPENICILLIN [Concomitant]
     Active Substance: PENICILLIN G
     Indication: CELLULITIS
     Dosage: 4.8 G, UNK
     Route: 042
     Dates: start: 20180912, end: 20180915
  23. DIAZEPAM. [Concomitant]
     Active Substance: DIAZEPAM
     Indication: BACK PAIN
     Dosage: 6 MG, QD
     Route: 048
     Dates: start: 20180105
  24. DOXYCYCLINE. [Concomitant]
     Active Substance: DOXYCYCLINE
     Indication: LOWER RESPIRATORY TRACT INFECTION
     Dosage: 200 MG, UNK
     Route: 048
     Dates: start: 20180814, end: 20180814
  25. GABAPENTIN. [Concomitant]
     Active Substance: GABAPENTIN
     Indication: PRODUCT USED FOR UNKNOWN INDICATION
     Dosage: 300 MG, TID
     Route: 048
     Dates: start: 20151231
  26. METRONIDAZOLE. [Concomitant]
     Active Substance: METRONIDAZOLE
     Indication: OSTEOMYELITIS
     Dosage: UNK
     Route: 048
  27. DENOSUMAB [Concomitant]
     Active Substance: DENOSUMAB
     Indication: METASTASES TO BONE
     Dosage: 120 MG, UNK
     Route: 058
     Dates: start: 20170604, end: 20170613
  28. DENOSUMAB [Concomitant]
     Active Substance: DENOSUMAB
     Dosage: 120 MG, UNK
     Route: 058
     Dates: start: 20180118
  29. PEPTAC [Concomitant]
     Active Substance: RANITIDINE HYDROCHLORIDE
     Indication: PRODUCT USED FOR UNKNOWN INDICATION
     Dosage: 15 ML, UNK
     Route: 048
  30. ZOMORPH [Concomitant]
     Active Substance: MORPHINE SULFATE
     Indication: PRODUCT USED FOR UNKNOWN INDICATION
     Dosage: 60 MG, QD
     Route: 048
     Dates: start: 201611
  31. MORPHINE SULPHATE [Concomitant]
     Active Substance: MORPHINE SULFATE
     Dosage: 40 MG, ONCE AT NIGHT
     Route: 048
     Dates: start: 20171224
  32. DEXAMETHASONE. [Concomitant]
     Active Substance: DEXAMETHASONE
     Indication: METASTASES TO BONE
     Dosage: 2 MG, UNK
     Route: 048
     Dates: start: 20151118, end: 20151124
  33. DEXAMETHASONE. [Concomitant]
     Active Substance: DEXAMETHASONE
     Dosage: 8 MG, UNK
     Route: 048
     Dates: start: 20151104, end: 20151110
  34. DEXAMETHASONE. [Concomitant]
     Active Substance: DEXAMETHASONE
     Dosage: REDUCING WEEKLY DOSE
     Route: 048
     Dates: start: 20151111, end: 20151117
  35. VITAMIN D3 [Concomitant]
     Active Substance: CHOLECALCIFEROL
     Indication: PRODUCT USED FOR UNKNOWN INDICATION
     Dosage: 400 IU, UNK
     Route: 048
  36. CITALOPRAM [Concomitant]
     Active Substance: CITALOPRAM HYDROBROMIDE
     Indication: PRODUCT USED FOR UNKNOWN INDICATION
     Dosage: 40 MG, QD
     Route: 048
     Dates: start: 2005
  37. CLARITHROMYCIN. [Concomitant]
     Active Substance: CLARITHROMYCIN
     Indication: LOWER RESPIRATORY TRACT INFECTION
     Dosage: 1000 MG, UNK
     Route: 048
     Dates: start: 20180701, end: 20180711
  38. LETROZOLE. [Concomitant]
     Active Substance: LETROZOLE
     Indication: PRODUCT USED FOR UNKNOWN INDICATION
     Dosage: 2.5 MG, QD
     Route: 048
     Dates: start: 20150707

REACTIONS (5)
  - Oral herpes [Recovered/Resolved]
  - Anaemia [Recovered/Resolved]
  - Anaemia [Not Recovered/Not Resolved]
  - Herpes zoster [Recovered/Resolved]
  - Lymphoedema [Not Recovered/Not Resolved]

NARRATIVE: CASE EVENT DATE: 20151112
